FAERS Safety Report 24468280 (Version 1)
Quarter: 2024Q4

REPORT INFORMATION
  Report Type: Spontaneous
  Country: NO (occurrence: NO)
  Receive Date: 20241018
  Receipt Date: 20241018
  Transmission Date: 20250114
  Serious: Yes (Other)
  Sender: RANBAXY
  Company Number: NO-SUN PHARMACEUTICAL INDUSTRIES LTD-2024R1-473926

PATIENT
  Age: 35 Year
  Sex: Female

DRUGS (1)
  1. MORPHINE [Suspect]
     Active Substance: MORPHINE
     Indication: Somnolence
     Dosage: 50 MCG
     Route: 037

REACTIONS (1)
  - Disease recurrence [Unknown]
